FAERS Safety Report 6633898-7 (Version None)
Quarter: 2010Q1

REPORT INFORMATION
  Report Type: 
  Country: None (occurrence: None)
  Receive Date: 20100315
  Receipt Date: 20100303
  Transmission Date: 20100710
  Serious: Yes (Other)
  Sender: FDA-Public Use
  Company Number: DE-WYE-H13984410

PATIENT
  Age: 75 Year
  Sex: Female

DRUGS (16)
  1. PANTOZOL [Suspect]
     Dosage: UNKNOWN
  2. SULPIRIDE [Suspect]
     Dosage: UNKNOWN
  3. FUROSEMIDE [Concomitant]
     Dosage: UNKNOWN
  4. ATEHEXAL [Concomitant]
     Dosage: UNKNOWN
  5. FLUNARIZINE [Concomitant]
     Dosage: UNKNOWN
  6. BUSCOPAN [Concomitant]
     Dosage: UNKNOWN
  7. SPIRONOLACTONE [Concomitant]
     Dosage: UNKNOWN
  8. VOLTAREN [Concomitant]
     Dosage: UNKNOWN
  9. NEDOLON P [Concomitant]
  10. TORSEMIDE [Concomitant]
     Dosage: UNKNOWN
  11. LISINOPRIL [Concomitant]
     Dosage: UNKNOWN
  12. DIAZEPAM [Concomitant]
     Dosage: UNKNOWN
  13. NAFTI ^PUREN^ [Concomitant]
     Dosage: UNKNOWN
  14. SIMVASTATIN [Concomitant]
     Dosage: UNKNOWN
  15. TILIDINE [Concomitant]
     Dosage: UNKNOWN
  16. ACETYLSALICYLIC ACID SRT [Suspect]
     Dosage: UNKNOWN

REACTIONS (1)
  - AUTOIMMUNE THROMBOCYTOPENIA [None]
